FAERS Safety Report 17805917 (Version 1)
Quarter: 2020Q2

REPORT INFORMATION
  Report Type: Spontaneous
  Country: US (occurrence: US)
  Receive Date: 20200519
  Receipt Date: 20200519
  Transmission Date: 20200714
  Serious: No
  Sender: FDA-Public Use
  Company Number: US-009507513-2005USA004148

PATIENT
  Age: 66 Year
  Sex: Male

DRUGS (5)
  1. METOPROLOL. [Concomitant]
     Active Substance: METOPROLOL
  2. ALBUTEROL SULFATE. [Suspect]
     Active Substance: ALBUTEROL SULFATE
     Indication: DYSPNOEA
  3. ALBUTEROL SULFATE. [Suspect]
     Active Substance: ALBUTEROL SULFATE
     Indication: WHEEZING
  4. ALBUTEROL SULFATE. [Suspect]
     Active Substance: ALBUTEROL SULFATE
     Indication: COUGH
     Dosage: 2 PUFFS EVERY 6 HOURS
     Dates: start: 202004
  5. AMLODIPINE [Concomitant]
     Active Substance: AMLODIPINE BESYLATE

REACTIONS (3)
  - Product quality issue [Unknown]
  - Poor quality device used [Unknown]
  - Product dose omission [Unknown]

NARRATIVE: CASE EVENT DATE: 202005
